FAERS Safety Report 7743209-1 (Version None)
Quarter: 2011Q3

REPORT INFORMATION
  Report Type: 
  Country: None (occurrence: None)
  Receive Date: 20110912
  Receipt Date: 20110830
  Transmission Date: 20111222
  Serious: Yes (Hospitalization)
  Sender: FDA-Public Use
  Company Number: IT-ELI_LILLY_AND_COMPANY-IT201108007111

PATIENT
  Sex: Male

DRUGS (4)
  1. OLANZAPINE [Suspect]
     Dosage: 405 MG, UNK
     Route: 030
     Dates: start: 20110721
  2. OLANZAPINE [Suspect]
     Dosage: 210 MG, UNK
     Route: 030
     Dates: start: 20110706
  3. CITALOPRAM HYDROBROMIDE [Concomitant]
     Dosage: 10 MG, UNKNOWN
     Route: 065
  4. OLANZAPINE [Suspect]
     Indication: SCHIZOPHRENIA
     Dosage: 210 MG, UNK
     Route: 030
     Dates: start: 20110620

REACTIONS (5)
  - LEUKOCYTOSIS [None]
  - NEUROLEPTIC MALIGNANT SYNDROME [None]
  - BRADYCARDIA [None]
  - ASPARTATE AMINOTRANSFERASE INCREASED [None]
  - NEUTROPHIL COUNT INCREASED [None]
